FAERS Safety Report 9840618 (Version 1)
Quarter: 2014Q1

REPORT INFORMATION
  Report Type: Spontaneous
  Country: US (occurrence: US)
  Receive Date: 20140124
  Receipt Date: 20140124
  Transmission Date: 20141002
  Serious: Yes (Hospitalization)
  Sender: FDA-Public Use
  Company Number: US-ROXANE LABORATORIES, INC.-2014-BI-02098GD

PATIENT
  Age: 90 Year
  Sex: Male

DRUGS (5)
  1. MORPHINE [Suspect]
  2. METOCLOPRAMIDE [Suspect]
  3. HYDROCODONE+APAP [Suspect]
  4. MEPERIDINE [Suspect]
  5. MIDAZOLAM [Suspect]

REACTIONS (6)
  - Delirium [Unknown]
  - Urinary retention [Unknown]
  - Confusional state [None]
  - Urinary tract infection [None]
  - Urethral injury [None]
  - Blood iron decreased [None]
